FAERS Safety Report 4924670-4 (Version None)
Quarter: 2006Q1

REPORT INFORMATION
  Report Type: 
  Country: None (occurrence: None)
  Receive Date: 20060222
  Receipt Date: 20060208
  Transmission Date: 20060701
  Serious: Yes (Hospitalization)
  Sender: FDA-Public Use
  Company Number: JP-2006-002272

PATIENT
  Age: 58 Year
  Sex: Male

DRUGS (1)
  1. PROSCOPE [Suspect]
     Indication: COMPUTERISED TOMOGRAM
     Dosage: 100 ML, 1  DOSE, INTRAVENOUS
     Route: 042
     Dates: start: 20060203, end: 20060203

REACTIONS (3)
  - ANAPHYLACTIC SHOCK [None]
  - CYANOSIS [None]
  - PRURITUS [None]
